FAERS Safety Report 9496680 (Version 1)
Quarter: 2013Q3

REPORT INFORMATION
  Report Type: Spontaneous
  Country: US (occurrence: None)
  Receive Date: 20130903
  Receipt Date: 20130903
  Transmission Date: 20140515
  Serious: Yes (Death)
  Sender: FDA-Public Use
  Company Number: None

PATIENT
  Age: 22 Year
  Sex: Female
  Weight: 63.5 kg

DRUGS (2)
  1. ABILIFY [Suspect]
     Indication: DEPRESSION
     Dosage: 1 TABLET AT BEDTIME  TAKEN BY MOUTH?MORE THAN ONE YEAR
     Route: 048
  2. LEVETIRACETAM [Suspect]
     Indication: CONVULSION
     Dosage: 1.5 TABLETS  TWICE DAILY  TAKEN BY MOUTH?MORE THAN 1 YEAR
     Route: 048

REACTIONS (3)
  - Dizziness [None]
  - Completed suicide [None]
  - Asphyxia [None]
